FAERS Safety Report 24861777 (Version 1)
Quarter: 2025Q1

REPORT INFORMATION
  Report Type: Spontaneous
  Country: US (occurrence: US)
  Receive Date: 20250120
  Receipt Date: 20250120
  Transmission Date: 20250409
  Serious: Yes (Other)
  Sender: AMGEN
  Company Number: US-AMGEN-USASP2025007448

PATIENT
  Sex: Male

DRUGS (1)
  1. REPATHA [Suspect]
     Active Substance: EVOLOCUMAB
     Indication: Product used for unknown indication
     Route: 058

REACTIONS (7)
  - Pneumonia [Unknown]
  - Lung disorder [Unknown]
  - Head discomfort [Unknown]
  - Sinusitis [Unknown]
  - Nasopharyngitis [Unknown]
  - Bronchitis [Unknown]
  - Hypoacusis [Unknown]
